FAERS Safety Report 20860968 (Version 3)
Quarter: 2023Q1

REPORT INFORMATION
  Report Type: Spontaneous
  Country: US (occurrence: US)
  Receive Date: 20220523
  Receipt Date: 20230228
  Transmission Date: 20230417
  Serious: Yes (Other)
  Sender: FDA-Public Use
  Company Number: US-GILEAD-2022-0582555

PATIENT
  Age: 62 Year
  Sex: Male
  Weight: 80.739 kg

DRUGS (23)
  1. ATRIPLA [Suspect]
     Active Substance: EFAVIRENZ\EMTRICITABINE\TENOFOVIR DISOPROXIL FUMARATE
     Indication: HIV infection
     Dosage: UNK
     Route: 048
     Dates: start: 2013
  2. STRIBILD [Suspect]
     Active Substance: COBICISTAT\ELVITEGRAVIR\EMTRICITABINE\TENOFOVIR DISOPROXIL FUMARATE
     Indication: HIV infection
     Dosage: UNK
     Route: 048
     Dates: start: 2013
  3. TRUVADA [Suspect]
     Active Substance: EMTRICITABINE\TENOFOVIR DISOPROXIL FUMARATE
     Indication: HIV infection
     Dosage: UNK
     Route: 048
     Dates: start: 2013
  4. TRUVADA [Suspect]
     Active Substance: EMTRICITABINE\TENOFOVIR DISOPROXIL FUMARATE
     Dosage: UNK
     Route: 048
     Dates: start: 201306, end: 201611
  5. DESCOVY [Concomitant]
     Active Substance: EMTRICITABINE\TENOFOVIR ALAFENAMIDE FUMARATE
  6. GENVOYA [Concomitant]
     Active Substance: COBICISTAT\ELVITEGRAVIR\EMTRICITABINE\TENOFOVIR ALAFENAMIDE FUMARATE
  7. ALFUZOSIN [Concomitant]
     Active Substance: ALFUZOSIN
  8. FARXIGA [Concomitant]
     Active Substance: DAPAGLIFLOZIN PROPANEDIOL
  9. ISENTRESS [Concomitant]
     Active Substance: RALTEGRAVIR POTASSIUM
  10. ADAPALENE [Concomitant]
     Active Substance: ADAPALENE
  11. ALLOPURINOL [Concomitant]
     Active Substance: ALLOPURINOL
  12. CELEBREX [Concomitant]
     Active Substance: CELECOXIB
  13. EZETIMIBE [Concomitant]
     Active Substance: EZETIMIBE
  14. FENOFIBRATE [Concomitant]
     Active Substance: FENOFIBRATE
  15. GLIPIZIDE [Concomitant]
     Active Substance: GLIPIZIDE
  16. HYDROCHLOROTHIAZIDE [Concomitant]
     Active Substance: HYDROCHLOROTHIAZIDE
  17. METFORMIN [Concomitant]
     Active Substance: METFORMIN HYDROCHLORIDE
  18. METRONIDAZOLE [Concomitant]
     Active Substance: METRONIDAZOLE
  19. MYTESI [Concomitant]
     Active Substance: CROFELEMER
  20. PEPCID AC [Concomitant]
     Active Substance: FAMOTIDINE
  21. PRAVASTATIN [Concomitant]
     Active Substance: PRAVASTATIN
  22. TRAMADOL [Concomitant]
     Active Substance: TRAMADOL
  23. TRAZODONE [Concomitant]
     Active Substance: TRAZODONE HYDROCHLORIDE

REACTIONS (12)
  - Multiple fractures [Unknown]
  - Chronic kidney disease [Not Recovered/Not Resolved]
  - End stage renal disease [Unknown]
  - Osteopenia [Not Recovered/Not Resolved]
  - Bone demineralisation [Unknown]
  - Pain [Not Recovered/Not Resolved]
  - Emotional distress [Not Recovered/Not Resolved]
  - Anxiety [Not Recovered/Not Resolved]
  - Anhedonia [Not Recovered/Not Resolved]
  - Renal cyst [Unknown]
  - Intervertebral disc degeneration [Unknown]
  - Depression [Unknown]

NARRATIVE: CASE EVENT DATE: 20160601
